FAERS Safety Report 5502260-2 (Version None)
Quarter: 2007Q4

REPORT INFORMATION
  Report Type: 
  Country: None (occurrence: None)
  Receive Date: 20071030
  Receipt Date: 20071022
  Transmission Date: 20080405
  Serious: Yes (Hospitalization)
  Sender: FDA-Public Use
  Company Number: US-ELI_LILLY_AND_COMPANY-US200709004428

PATIENT
  Sex: Female

DRUGS (8)
  1. BYETTA [Suspect]
     Dosage: 5 UG, 2/D
     Dates: start: 20070814, end: 20070816
  2. CYMBALTA [Concomitant]
     Dosage: 60 MG, UNKNOWN
     Dates: start: 20060901, end: 20070907
  3. SYNTHROID [Concomitant]
     Dosage: UNK, UNKNOWN
  4. METFORMIN HCL [Concomitant]
     Dosage: 1 G, 2/D
  5. DOXYCYCLINE [Concomitant]
     Dosage: 100 MG, EACH EVENING
  6. ZOLOFT [Concomitant]
     Dosage: UNK, UNKNOWN
  7. ESTRATEST [Concomitant]
     Dosage: UNK, UNKNOWN
     Dates: end: 20070719
  8. TORADOL [Concomitant]
     Dosage: UNK, UNKNOWN
     Dates: start: 20070101

REACTIONS (1)
  - PANCREATITIS [None]
